FAERS Safety Report 7789914-2 (Version None)
Quarter: 2011Q3

REPORT INFORMATION
  Report Type: 
  Country: None (occurrence: None)
  Receive Date: 20110930
  Receipt Date: 20110726
  Transmission Date: 20111222
  Serious: No
  Sender: FDA-Public Use
  Company Number: US-ASTRAZENECA-2010SE45842

PATIENT
  Age: 86 Year
  Sex: Female
  Weight: 81.2 kg

DRUGS (14)
  1. ALPRAZOLAM [Concomitant]
     Indication: ANXIETY
  2. POTASSIUM [Concomitant]
     Indication: MEDICAL DIET
  3. VITAMIN B-12 [Concomitant]
     Indication: MEDICAL DIET
  4. CALCIUM CARBONATE [Concomitant]
     Indication: MEDICAL DIET
  5. TUSSINEX [Concomitant]
     Indication: BRONCHITIS
  6. ARIMIDEX [Suspect]
     Indication: BREAST CANCER
     Route: 048
     Dates: start: 20100927
  7. ERYTHROMYCIN [Concomitant]
  8. NIACIN [Concomitant]
  9. COUMADIN [Concomitant]
     Indication: THROMBOSIS
  10. AMLODIPINE [Concomitant]
     Indication: HYPERTENSION
  11. GEMFIBROZIL [Concomitant]
     Indication: HYPERTRIGLYCERIDAEMIA
  12. PRAVASTATIN [Concomitant]
     Indication: HYPERCHOLESTEROLAEMIA
  13. MULTI-VITAMIN [Concomitant]
     Indication: MEDICAL DIET
  14. FUROSEMIDE [Concomitant]
     Indication: POLYURIA

REACTIONS (2)
  - TINNITUS [None]
  - INSOMNIA [None]
